FAERS Safety Report 6268304-8 (Version None)
Quarter: 2009Q3

REPORT INFORMATION
  Report Type: 
  Country: None (occurrence: None)
  Receive Date: 20090715
  Receipt Date: 20090709
  Transmission Date: 20100115
  Serious: Yes (Death)
  Sender: FDA-Public Use
  Company Number: IL-CELGENEUS-082-C5013-09051338

PATIENT
  Age: 53 Year
  Sex: Female

DRUGS (1)
  1. CC-5013 [Suspect]
     Route: 048
     Dates: start: 20090301, end: 20090315

REACTIONS (2)
  - HAEMORRHAGE [None]
  - SEPSIS [None]
